FAERS Safety Report 14019612 (Version 1)
Quarter: 2017Q3

REPORT INFORMATION
  Report Type: Spontaneous
  Country: US (occurrence: US)
  Receive Date: 20170928
  Receipt Date: 20170928
  Transmission Date: 20171128
  Serious: Yes (Hospitalization)
  Sender: FDA-Public Use
  Company Number: US-FRESENIUS KABI-FK201708042

PATIENT
  Age: 67 Year
  Sex: Female

DRUGS (6)
  1. MORPHINE (MANUFACTURER UNKNOWN) [Suspect]
     Active Substance: MORPHINE
     Route: 037
  2. FENTANYL. [Suspect]
     Active Substance: FENTANYL
     Route: 062
  3. OXYCODONE [Suspect]
     Active Substance: OXYCODONE
     Indication: BACK PAIN
     Route: 065
     Dates: start: 2004
  4. MORPHINE (MANUFACTURER UNKNOWN) [Suspect]
     Active Substance: MORPHINE
     Indication: BACK PAIN
     Route: 037
     Dates: start: 2004
  5. HYDROCODONE [Suspect]
     Active Substance: HYDROCODONE
     Indication: BACK PAIN
     Route: 065
     Dates: start: 2004
  6. FENTANYL. [Suspect]
     Active Substance: FENTANYL
     Indication: BACK PAIN
     Route: 062
     Dates: start: 2009

REACTIONS (6)
  - Constipation [Unknown]
  - Small intestinal obstruction [Unknown]
  - Anxiety [Unknown]
  - Hyperaesthesia [Recovered/Resolved]
  - Pneumonia [Unknown]
  - Loss of personal independence in daily activities [Recovered/Resolved]
